FAERS Safety Report 8960093 (Version 1)
Quarter: 2012Q4

REPORT INFORMATION
  Report Type: 
  Country: IL (occurrence: IL)
  Receive Date: 20121212
  Receipt Date: 20121212
  Transmission Date: 20130627
  Serious: Yes (Hospitalization)
  Sender: FDA-Public Use
  Company Number: PHHY2012IL113146

PATIENT
  Sex: Male

DRUGS (2)
  1. SANDOSTATIN LAR [Suspect]
     Indication: ACROMEGALY
     Dosage: 20 mg, every fourth week
     Dates: start: 20120315
  2. SANDOSTATIN LAR [Suspect]
     Dosage: 20 mg, every fourth week
     Dates: start: 20121205

REACTIONS (2)
  - Respiratory disorder [Unknown]
  - Snoring [Unknown]
